FAERS Safety Report 25179640 (Version 1)
Quarter: 2025Q2

REPORT INFORMATION
  Report Type: Spontaneous
  Country: US (occurrence: None)
  Receive Date: 20250408
  Receipt Date: 20250408
  Transmission Date: 20250716
  Serious: Yes (Other)
  Sender: FDA-CTU
  Company Number: None

PATIENT
  Age: 39 Year
  Sex: Male
  Weight: 90.4 kg

DRUGS (1)
  1. LACOSAMIDE [Suspect]
     Active Substance: LACOSAMIDE

REACTIONS (5)
  - Dizziness [None]
  - Somnolence [None]
  - Oropharyngeal discomfort [None]
  - Abdominal discomfort [None]
  - Back pain [None]

NARRATIVE: CASE EVENT DATE: 20240305
